FAERS Safety Report 20521477 (Version 1)
Quarter: 2022Q1

REPORT INFORMATION
  Report Type: Spontaneous
  Country: CH (occurrence: CH)
  Receive Date: 20220226
  Receipt Date: 20220226
  Transmission Date: 20220424
  Serious: Yes (Death, Other)
  Sender: FDA-Public Use
  Company Number: CH-AMGEN-CHESP2022028917

PATIENT

DRUGS (1)
  1. PROLIA [Suspect]
     Active Substance: DENOSUMAB
     Indication: Osteoporosis
     Dosage: UNK
     Route: 065

REACTIONS (15)
  - Osteoporotic fracture [Fatal]
  - Hip fracture [Unknown]
  - Spinal fracture [Unknown]
  - Pelvic fracture [Unknown]
  - Forearm fracture [Unknown]
  - Humerus fracture [Unknown]
  - Rib fracture [Unknown]
  - Scapula fracture [Unknown]
  - Upper limb fracture [Unknown]
  - Foot fracture [Unknown]
  - Patella fracture [Unknown]
  - Hand fracture [Unknown]
  - Fractured sacrum [Unknown]
  - Atypical femur fracture [Fatal]
  - Impaired healing [Unknown]
